FAERS Safety Report 19713653 (Version 1)
Quarter: 2021Q3

REPORT INFORMATION
  Report Type: Spontaneous
  Country: US (occurrence: US)
  Receive Date: 20210818
  Receipt Date: 20210818
  Transmission Date: 20211014
  Serious: No
  Sender: FDA-Public Use
  Company Number: US-SA-2021SA268758

PATIENT
  Age: 63 Year
  Sex: Female

DRUGS (3)
  1. DUPIXENT [Suspect]
     Active Substance: DUPILUMAB
     Indication: RHEUMATOID ARTHRITIS
  2. DUPIXENT [Suspect]
     Active Substance: DUPILUMAB
     Indication: DRUG THERAPY
     Dosage: 300 MG, QOW
     Route: 058
     Dates: start: 202106
  3. DUPIXENT [Suspect]
     Active Substance: DUPILUMAB
     Indication: ASTHMA

REACTIONS (3)
  - Product use in unapproved indication [Unknown]
  - Fibromyalgia [Unknown]
  - Product use issue [Unknown]

NARRATIVE: CASE EVENT DATE: 2021
